FAERS Safety Report 5793379-X (Version None)
Quarter: 2008Q2

REPORT INFORMATION
  Report Type: 
  Country: None (occurrence: None)
  Receive Date: 20080601
  Receipt Date: 20080102
  Transmission Date: 20081010
  Serious: No
  Sender: FDA-Public Use
  Company Number: US200801000418

PATIENT
  Age: 48 Year
  Sex: Female
  Weight: 88.4 kg

DRUGS (6)
  1. BYETTA [Suspect]
     Indication: TYPE 2 DIABETES MELLITUS
     Dosage: 5 UG, 2/D, SUBCUTANEOUS
     Route: 058
     Dates: start: 20071226
  2. METFORMIN HCL [Concomitant]
  3. TYLENOL /SCH/ (PARACETAMOL) [Concomitant]
  4. MENOPAUSE FORMULA (CALCIUM, CIMICIFUGA RACEMOSA EXTRACT, GENISTEIN, HE [Concomitant]
  5. CHROMIUM PICOLINATE (CHROMIUM PICOLINATE) [Concomitant]
  6. VICODIN [Concomitant]

REACTIONS (2)
  - BACK PAIN [None]
  - FEELING COLD [None]
